FAERS Safety Report 7070410-5 (Version None)
Quarter: 2010Q4

REPORT INFORMATION
  Report Type: 
  Country: None (occurrence: None)
  Receive Date: 20101029
  Receipt Date: 20101018
  Transmission Date: 20110411
  Serious: Yes (Hospitalization)
  Sender: FDA-Public Use
  Company Number: US-BIOGENIDEC-2010BI035835

PATIENT
  Sex: Female

DRUGS (1)
  1. AVONEX [Suspect]
     Indication: MULTIPLE SCLEROSIS
     Route: 030
     Dates: start: 20020707

REACTIONS (6)
  - APPENDICECTOMY [None]
  - CHOLELITHIASIS [None]
  - COLON CANCER [None]
  - FEELING ABNORMAL [None]
  - HAEMORRHAGE [None]
  - THROMBOSIS [None]
